FAERS Safety Report 22151675 (Version 1)
Quarter: 2023Q1

REPORT INFORMATION
  Report Type: Spontaneous
  Country: US (occurrence: US)
  Receive Date: 20230329
  Receipt Date: 20230329
  Transmission Date: 20230417
  Serious: No
  Sender: FDA-Public Use
  Company Number: US-BAYER-2023A034863

PATIENT
  Age: 24 Year
  Sex: Female

DRUGS (1)
  1. MIRENA [Suspect]
     Active Substance: LEVONORGESTREL
     Dosage: 20?G/DAY
     Route: 015
     Dates: start: 20230314, end: 20230314

REACTIONS (3)
  - Complication of device insertion [None]
  - Uterine cervix stenosis [None]
  - Abdominal discomfort [None]

NARRATIVE: CASE EVENT DATE: 20230314
